FAERS Safety Report 7064819-3 (Version None)
Quarter: 2010Q4

REPORT INFORMATION
  Report Type: 
  Country: None (occurrence: None)
  Receive Date: 20101027
  Receipt Date: 19860115
  Transmission Date: 20110411
  Serious: Yes (Death)
  Sender: FDA-Public Use
  Company Number: DE-ROCHE-860313005001

PATIENT
  Sex: Male

DRUGS (1)
  1. MIDAZOLAM HCL [Suspect]
     Route: 030

REACTIONS (1)
  - CEREBRAL HAEMORRHAGE [None]
